FAERS Safety Report 10614974 (Version 2)
Quarter: 2014Q4

REPORT INFORMATION
  Report Type: Report from Study
  Country: DE (occurrence: DE)
  Receive Date: 20141201
  Receipt Date: 20141201
  Transmission Date: 20150529
  Serious: Yes (Hospitalization)
  Sender: FDA-Public Use
  Company Number: DE-ROCHE-1457857

PATIENT
  Age: 73 Year
  Sex: Female
  Weight: 82 kg

DRUGS (4)
  1. TOCILIZUMAB [Suspect]
     Active Substance: TOCILIZUMAB
     Indication: RHEUMATOID ARTHRITIS
     Route: 042
     Dates: start: 20140612, end: 20140612
  2. HEPARIN [Concomitant]
     Active Substance: HEPARIN SODIUM
     Route: 058
  3. ERYTHROCYTE CONCENTRATE [Concomitant]
     Active Substance: HUMAN RED BLOOD CELL
     Route: 065
  4. ADALIMUMAB [Suspect]
     Active Substance: ADALIMUMAB
     Indication: RHEUMATOID ARTHRITIS
     Route: 065
     Dates: end: 20140604

REACTIONS (2)
  - Compartment syndrome [Recovered/Resolved]
  - Venous thrombosis limb [Recovering/Resolving]

NARRATIVE: CASE EVENT DATE: 20140707
